FAERS Safety Report 7478228-6 (Version None)
Quarter: 2011Q2

REPORT INFORMATION
  Report Type: 
  Country: None (occurrence: None)
  Receive Date: 20110513
  Receipt Date: 20110505
  Transmission Date: 20111010
  Serious: Yes (Other)
  Sender: FDA-Public Use
  Company Number: PHFR2011GB02915

PATIENT
  Sex: Male

DRUGS (5)
  1. CITALOPRAM HYDROBROMIDE [Concomitant]
     Indication: SCHIZOPHRENIA
     Dosage: 20 MG, QD
  2. AMISULPRIDE [Concomitant]
     Indication: SCHIZOPHRENIA
     Dosage: 200MG
  3. CLOZARIL [Suspect]
     Indication: SCHIZOPHRENIA
     Dosage: 200 MG, QD
     Route: 048
     Dates: start: 20100617
  4. CLOZARIL [Suspect]
     Dosage: 250 MG, QD
     Route: 048
  5. CLOZARIL [Suspect]
     Dosage: 200MG

REACTIONS (12)
  - DYSPNOEA [None]
  - MALAISE [None]
  - DISTURBANCE IN ATTENTION [None]
  - CONFUSIONAL STATE [None]
  - ASTHENIA [None]
  - MOVEMENT DISORDER [None]
  - MENTAL IMPAIRMENT [None]
  - ANXIETY [None]
  - HYPERSOMNIA [None]
  - HYPOAESTHESIA [None]
  - DEPRESSED MOOD [None]
  - NERVOUSNESS [None]
